FAERS Safety Report 14276870 (Version 1)
Quarter: 2017Q4

REPORT INFORMATION
  Report Type: Spontaneous
  Country: CN (occurrence: CN)
  Receive Date: 20171212
  Receipt Date: 20171212
  Transmission Date: 20180321
  Serious: Yes (Life-Threatening)
  Sender: FDA-Public Use
  Company Number: CN-BAXTER-2017BAX041707

PATIENT
  Age: 3 Year
  Sex: Male
  Weight: 16.5 kg

DRUGS (4)
  1. ASPARAGINASE (ESCHERICHIA) [Suspect]
     Active Substance: ASPARAGINASE
     Indication: SKIN TEST
     Route: 041
     Dates: start: 20170928, end: 20170928
  2. 0.9% SODIUM CHLORIDE INJECTION [Suspect]
     Active Substance: SODIUM CHLORIDE
     Indication: MEDICATION DILUTION
     Dosage: DOSAGE FORM: INJECTION
     Route: 041
     Dates: start: 20170928, end: 20170928
  3. 0.9% SODIUM CHLORIDE INJECTION [Suspect]
     Active Substance: SODIUM CHLORIDE
     Indication: MEDICATION DILUTION
     Dosage: DOSAGE FORM: INJECTION
     Route: 041
     Dates: start: 20170928, end: 20170928
  4. ASPARAGINASE (ESCHERICHIA) [Suspect]
     Active Substance: ASPARAGINASE
     Indication: ACUTE LYMPHOCYTIC LEUKAEMIA
     Route: 041
     Dates: start: 20170928, end: 20170928

REACTIONS (1)
  - Anaphylactic shock [Recovered/Resolved]

NARRATIVE: CASE EVENT DATE: 20170928
